FAERS Safety Report 9047336 (Version 1)
Quarter: 2013Q1

REPORT INFORMATION
  Report Type: Report from Study
  Country: US (occurrence: US)
  Receive Date: 20130131
  Receipt Date: 20130131
  Transmission Date: 20140127
  Serious: No
  Sender: FDA-Public Use
  Company Number: US-ABBOTT-12P-163-0980972-00

PATIENT
  Age: 44 Year
  Sex: Female

DRUGS (3)
  1. HUMIRA [Suspect]
     Indication: CROHN^S DISEASE
  2. BENADRYL [Concomitant]
     Indication: HYPERSENSITIVITY
     Route: 048
  3. IMODIUM [Concomitant]
     Indication: DIARRHOEA
     Route: 048

REACTIONS (1)
  - Swelling [Not Recovered/Not Resolved]
